FAERS Safety Report 7304688-7 (Version None)
Quarter: 2011Q1

REPORT INFORMATION
  Report Type: 
  Country: None (occurrence: None)
  Receive Date: 20110222
  Receipt Date: 20110208
  Transmission Date: 20110831
  Serious: Yes (Hospitalization)
  Sender: FDA-Public Use
  Company Number: US-CELGENEUS-163-21880-11011321

PATIENT
  Sex: Female

DRUGS (2)
  1. ZOMETA [Concomitant]
     Route: 065
  2. REVLIMID [Suspect]
     Route: 048
     Dates: start: 20100901

REACTIONS (1)
  - RENAL TUBULAR NECROSIS [None]
